FAERS Safety Report 8520224-1 (Version None)
Quarter: 2012Q3

REPORT INFORMATION
  Report Type: 
  Country: None (occurrence: None)
  Receive Date: 20120719
  Receipt Date: 20120711
  Transmission Date: 20120928
  Serious: Yes (Other)
  Sender: FDA-Public Use
  Company Number: US-JNJFOC-20120705823

PATIENT
  Sex: Male

DRUGS (4)
  1. PLAVIX [Concomitant]
  2. XARELTO [Suspect]
     Indication: THROMBOSIS PROPHYLAXIS
     Route: 048
  3. XARELTO [Suspect]
     Indication: HIP ARTHROPLASTY
     Route: 048
  4. ASPIRIN [Concomitant]

REACTIONS (1)
  - PULMONARY EMBOLISM [None]
